FAERS Safety Report 5588013-8 (Version None)
Quarter: 2008Q1

REPORT INFORMATION
  Report Type: 
  Country: None (occurrence: None)
  Receive Date: 20080111
  Receipt Date: 20080103
  Transmission Date: 20080703
  Serious: Yes (Other)
  Sender: FDA-Public Use
  Company Number: PL-PFIZER INC-2008000160

PATIENT
  Sex: Male
  Weight: 92 kg

DRUGS (12)
  1. SORTIS [Interacting]
     Indication: HYPERTENSION
     Dosage: DAILY DOSE:40MG
     Route: 048
  2. SORTIS [Interacting]
     Indication: MYOCARDIAL INFARCTION
  3. LIPANTHYL [Suspect]
     Indication: HYPERTENSION
     Dosage: DAILY DOSE:267MG
     Route: 048
     Dates: start: 20071017, end: 20071024
  4. LIPANTHYL [Suspect]
     Indication: MYOCARDIAL INFARCTION
  5. SERTRALINE [Interacting]
     Indication: HYPERTENSION
     Dosage: DAILY DOSE:50MG
     Route: 048
     Dates: start: 20071017, end: 20071024
  6. SERTRALINE [Interacting]
     Indication: MYOCARDIAL INFARCTION
  7. ACARD [Concomitant]
  8. PLAVIX [Concomitant]
  9. BISOCARD [Concomitant]
  10. LISIHEXAL [Concomitant]
  11. HYGROTON [Concomitant]
  12. KALDYUM [Concomitant]

REACTIONS (2)
  - DRUG INTERACTION [None]
  - MYALGIA [None]
